FAERS Safety Report 24897614 (Version 1)
Quarter: 2025Q1

REPORT INFORMATION
  Report Type: Spontaneous
  Country: US (occurrence: US)
  Receive Date: 20250129
  Receipt Date: 20250129
  Transmission Date: 20250409
  Serious: No
  Sender: CSL BEHRING
  Company Number: US-BEH-2025192628

PATIENT
  Sex: Female

DRUGS (5)
  1. HIZENTRA [Suspect]
     Active Substance: HUMAN IMMUNOGLOBULIN G
     Indication: Chronic inflammatory demyelinating polyradiculoneuropathy
     Route: 065
     Dates: start: 2024
  2. LAMICTAL [Concomitant]
     Active Substance: LAMOTRIGINE
  3. LISDEXAMFETAMINE DIMESYLATE [Concomitant]
     Active Substance: LISDEXAMFETAMINE DIMESYLATE
  4. SERTRALINE HYDROCHLORIDE [Concomitant]
     Active Substance: SERTRALINE HYDROCHLORIDE
  5. WELLBUTRIN SR [Concomitant]
     Active Substance: BUPROPION HYDROCHLORIDE

REACTIONS (5)
  - Infusion site irritation [Recovered/Resolved]
  - Infusion site pain [Recovered/Resolved]
  - Infusion site erythema [Recovered/Resolved]
  - Infusion site swelling [Recovered/Resolved]
  - Depression [Recovered/Resolved]
